FAERS Safety Report 15323277 (Version 12)
Quarter: 2018Q4

REPORT INFORMATION
  Report Type: Spontaneous
  Country: IL (occurrence: IL)
  Receive Date: 20180827
  Receipt Date: 20181203
  Transmission Date: 20190204
  Serious: Yes (Life-Threatening, Hospitalization, Other)
  Sender: FDA-Public Use
  Company Number: IL-CELGENEUS-ISR-20180803817

PATIENT
  Age: 80 Year
  Sex: Female

DRUGS (29)
  1. VENETOCLAX. [Concomitant]
     Active Substance: VENETOCLAX
     Dosage: 100 MILLIGRAM
     Route: 048
     Dates: start: 20180102, end: 20180102
  2. OMEPRAZOLE. [Concomitant]
     Active Substance: OMEPRAZOLE
     Indication: PROPHYLAXIS
     Dosage: 80 MILLIGRAM
     Route: 048
     Dates: start: 20180803, end: 20180914
  3. ENOXAPARIN SODIUM. [Concomitant]
     Active Substance: ENOXAPARIN SODIUM
     Indication: EMBOLISM
     Dosage: 20 MILLIGRAM
     Route: 058
     Dates: start: 20180514, end: 20180914
  4. PREGABALIN. [Concomitant]
     Active Substance: PREGABALIN
     Dosage: 50 MILLIGRAM
     Route: 048
     Dates: start: 20180813, end: 20180814
  5. SERETIDE D [Concomitant]
     Route: 055
     Dates: start: 20180104, end: 20180108
  6. VENETOCLAX. [Concomitant]
     Active Substance: VENETOCLAX
     Dosage: 400 MILLIGRAM
     Route: 048
     Dates: start: 20180104, end: 20180124
  7. PREDNISOLONE. [Concomitant]
     Active Substance: PREDNISOLONE
     Indication: DEVICE DISLOCATION
     Dosage: 36 DROPS
     Route: 047
     Dates: start: 20180531
  8. FENTANYL CITRATE. [Concomitant]
     Active Substance: FENTANYL CITRATE
     Route: 048
     Dates: start: 20180828, end: 20180912
  9. SERETIDE D [Concomitant]
     Route: 055
     Dates: start: 20171229, end: 20171229
  10. SERETIDE D [Concomitant]
     Route: 055
     Dates: start: 20180102, end: 20180103
  11. FENTANYL CITRATE. [Concomitant]
     Active Substance: FENTANYL CITRATE
     Indication: OSTEOMYELITIS
     Route: 048
     Dates: start: 20180810, end: 20180822
  12. FENTANYL CITRATE. [Concomitant]
     Active Substance: FENTANYL CITRATE
     Route: 048
     Dates: start: 20180804, end: 20180810
  13. OFLOXACIN. [Concomitant]
     Active Substance: OFLOXACIN
     Indication: VITRECTOMY
     Dosage: 9 DROPS
     Route: 047
     Dates: start: 20180531
  14. SERETIDE D [Concomitant]
     Indication: ASTHMA
     Route: 055
     Dates: start: 20180109, end: 20180914
  15. SERETIDE D [Concomitant]
     Route: 055
     Dates: start: 20171230, end: 20171230
  16. VENETOCLAX. [Concomitant]
     Active Substance: VENETOCLAX
     Indication: ACUTE MYELOID LEUKAEMIA
     Dosage: 400 MILLIGRAM
     Route: 048
     Dates: start: 20180126, end: 20180803
  17. PREGABALIN. [Concomitant]
     Active Substance: PREGABALIN
     Indication: OSTEOMYELITIS
     Dosage: 25 MILLIGRAM
     Route: 048
     Dates: start: 20180812, end: 20180812
  18. SERETIDE D [Concomitant]
     Route: 055
     Dates: start: 20171226, end: 20171227
  19. SERETIDE D [Concomitant]
     Route: 055
     Dates: start: 20171228, end: 20171228
  20. SERETIDE D [Concomitant]
     Route: 055
     Dates: start: 20180101, end: 20180101
  21. VENETOCLAX. [Concomitant]
     Active Substance: VENETOCLAX
     Dosage: 200 MILLIGRAM
     Route: 048
     Dates: start: 20180125, end: 20180125
  22. VENETOCLAX. [Concomitant]
     Active Substance: VENETOCLAX
     Dosage: 200 MILLIGRAM
     Route: 048
     Dates: start: 20180103, end: 20180103
  23. OMEPRAZOLE. [Concomitant]
     Active Substance: OMEPRAZOLE
     Dosage: 80 MILLIGRAM
     Route: 048
     Dates: start: 20171229, end: 20180903
  24. SERETIDE D [Concomitant]
     Route: 055
     Dates: start: 20171231, end: 20171231
  25. AZACITIDINE. [Suspect]
     Active Substance: AZACITIDINE
     Indication: ACUTE MYELOID LEUKAEMIA
     Dosage: 75 MILLIGRAM/SQ. METER
     Route: 058
     Dates: start: 20180102, end: 20180718
  26. PREGABALIN. [Concomitant]
     Active Substance: PREGABALIN
     Dosage: 75 MILLIGRAM
     Route: 048
     Dates: start: 20180815, end: 20180911
  27. NEPAFENAC [Concomitant]
     Active Substance: NEPAFENAC
     Indication: VITRECTOMY
     Dosage: 9 DROPS
     Route: 047
     Dates: start: 20180531
  28. MAXITROL [Concomitant]
     Active Substance: DEXAMETHASONE\NEOMYCIN SULFATE\POLYMYXIN B SULFATE
     Indication: VITRECTOMY
     Dosage: 3 DROPS
     Route: 047
     Dates: start: 20180531
  29. OMEPRAZOLE. [Concomitant]
     Active Substance: OMEPRAZOLE
     Dosage: 80 MILLIGRAM
     Route: 048
     Dates: start: 20171225, end: 20171227

REACTIONS (3)
  - Headache [Recovered/Resolved]
  - Confusional state [Recovered/Resolved]
  - Osteomyelitis [Recovered/Resolved]

NARRATIVE: CASE EVENT DATE: 20180802
